FAERS Safety Report 23675940 (Version 1)
Quarter: 2024Q1

REPORT INFORMATION
  Report Type: Spontaneous
  Country: GB (occurrence: GB)
  Receive Date: 20240327
  Receipt Date: 20240327
  Transmission Date: 20240409
  Serious: Yes (Death, Other)
  Sender: FDA-Public Use
  Company Number: None

PATIENT
  Age: 37 Year
  Sex: Female

DRUGS (14)
  1. PREGABALIN [Suspect]
     Active Substance: PREGABALIN
     Indication: Product used for unknown indication
     Dosage: UNK
  2. PREGABALIN [Suspect]
     Active Substance: PREGABALIN
     Dosage: UNK
  3. OXYCODONE [Suspect]
     Active Substance: OXYCODONE\OXYCODONE HYDROCHLORIDE
     Indication: Product used for unknown indication
  4. OXYCODONE [Suspect]
     Active Substance: OXYCODONE\OXYCODONE HYDROCHLORIDE
  5. OXYCODONE [Suspect]
     Active Substance: OXYCODONE\OXYCODONE HYDROCHLORIDE
  6. CODEINE [Suspect]
     Active Substance: CODEINE
     Indication: Product used for unknown indication
  7. CODEINE [Suspect]
     Active Substance: CODEINE
  8. MORPHINE SULFATE [Suspect]
     Active Substance: MORPHINE SULFATE
     Indication: Product used for unknown indication
  9. MORPHINE SULFATE [Suspect]
     Active Substance: MORPHINE SULFATE
  10. MORPHINE SULFATE [Suspect]
     Active Substance: MORPHINE SULFATE
  11. MIRTAZAPINE [Suspect]
     Active Substance: MIRTAZAPINE
     Indication: Product used for unknown indication
  12. COCAINE [Suspect]
     Active Substance: COCAINE
     Indication: Product used for unknown indication
  13. COCAINE [Suspect]
     Active Substance: COCAINE
  14. COCAINE [Suspect]
     Active Substance: COCAINE

REACTIONS (4)
  - Toxicity to various agents [Fatal]
  - Cardiac arrest [Fatal]
  - Death [Fatal]
  - Drug abuse [Fatal]

NARRATIVE: CASE EVENT DATE: 20180420
